FAERS Safety Report 4704352-4 (Version None)
Quarter: 2005Q2

REPORT INFORMATION
  Report Type: 
  Country: None (occurrence: None)
  Receive Date: 20050630
  Receipt Date: 20050617
  Transmission Date: 20051028
  Serious: Yes (Life-Threatening, Hospitalization)
  Sender: FDA-Public Use
  Company Number: FR-JNJFOC-20050600075

PATIENT
  Sex: Male
  Weight: 46.6 kg

DRUGS (2)
  1. HALDOL [Suspect]
     Dosage: 2MG/2ML SOLUTION
     Route: 049
     Dates: start: 20050518, end: 20050527
  2. RIFAMPICIN [Suspect]
     Indication: TUBERCULOSIS
     Dosage: DOSE= 1 TABLET
     Route: 049
     Dates: start: 20050516, end: 20050522

REACTIONS (1)
  - AUTOIMMUNE THROMBOCYTOPENIA [None]
